FAERS Safety Report 19304311 (Version 1)
Quarter: 2021Q2

REPORT INFORMATION
  Report Type: Not Available
  Country: None (occurrence: None)
  Receive Date: 20210525
  Receipt Date: 20210525
  Transmission Date: 20210717
  Serious: No
  Sender: FDA-Public Use
  Company Number: US-AKORN-167921

PATIENT
  Sex: Female

DRUGS (1)
  1. BRIMONIDINE TARTRATE OPHTHALMIC SOLUTION [Suspect]
     Active Substance: BRIMONIDINE TARTRATE

REACTIONS (4)
  - Ocular discomfort [Recovered/Resolved]
  - Intraocular pressure increased [Recovered/Resolved]
  - Vision blurred [Recovered/Resolved]
  - Drug ineffective [Recovered/Resolved]
